FAERS Safety Report 25671099 (Version 1)
Quarter: 2025Q3

REPORT INFORMATION
  Report Type: Spontaneous
  Country: EU (occurrence: EU)
  Receive Date: 20250812
  Receipt Date: 20250812
  Transmission Date: 20251020
  Serious: Yes (Other)
  Sender: MYLAN
  Company Number: None

PATIENT
  Age: 60 Year
  Sex: Male

DRUGS (12)
  1. ACETAMINOPHEN [Suspect]
     Active Substance: ACETAMINOPHEN
     Indication: Product used for unknown indication
  2. ACETAMINOPHEN [Suspect]
     Active Substance: ACETAMINOPHEN
     Route: 048
  3. ACETAMINOPHEN [Suspect]
     Active Substance: ACETAMINOPHEN
     Route: 048
  4. ACETAMINOPHEN [Suspect]
     Active Substance: ACETAMINOPHEN
  5. MORPHINE [Suspect]
     Active Substance: MORPHINE
     Indication: Product used for unknown indication
  6. MORPHINE [Suspect]
     Active Substance: MORPHINE
     Route: 048
  7. MORPHINE [Suspect]
     Active Substance: MORPHINE
     Route: 048
  8. MORPHINE [Suspect]
     Active Substance: MORPHINE
  9. CODEINE [Suspect]
     Active Substance: CODEINE
     Indication: Product used for unknown indication
  10. CODEINE [Suspect]
     Active Substance: CODEINE
     Route: 048
  11. CODEINE [Suspect]
     Active Substance: CODEINE
     Route: 048
  12. CODEINE [Suspect]
     Active Substance: CODEINE

REACTIONS (1)
  - Drug use disorder [Not Recovered/Not Resolved]
